FAERS Safety Report 9858760 (Version 1)
Quarter: 2014Q1

REPORT INFORMATION
  Report Type: Spontaneous
  Country: US (occurrence: US)
  Receive Date: 20140131
  Receipt Date: 20140131
  Transmission Date: 20141002
  Serious: Yes (Hospitalization, Other)
  Sender: FDA-Public Use
  Company Number: US-ELI_LILLY_AND_COMPANY-US201401007584

PATIENT
  Sex: Male

DRUGS (15)
  1. HUMALOG 25% LISPRO, 75% NPL [Suspect]
     Indication: TYPE 2 DIABETES MELLITUS
     Dosage: 22 U, EACH MORNING
     Route: 065
  2. HUMALOG 25% LISPRO, 75% NPL [Suspect]
     Dosage: 12 U, EACH EVENING
     Route: 065
  3. HUMALOG 25% LISPRO, 75% NPL [Suspect]
     Dosage: 24 U, EACH MORNING
     Route: 065
  4. HUMALOG 25% LISPRO, 75% NPL [Suspect]
     Dosage: 14 U, EACH EVENING
     Route: 065
  5. METFORMIN [Concomitant]
  6. GLIMEPIRIDE [Concomitant]
  7. SIMVASTATIN [Concomitant]
  8. AMLODIPINE [Concomitant]
  9. CARVEDILOL [Concomitant]
  10. FUROSEMIDE [Concomitant]
  11. SPIRONOLACTONE [Concomitant]
  12. PRILOSEC                           /00661201/ [Concomitant]
  13. LORATADINE [Concomitant]
  14. FLUTICASONE [Concomitant]
     Route: 045
  15. CENTRUM SILVER                     /01292501/ [Concomitant]

REACTIONS (3)
  - Cardiac failure congestive [Unknown]
  - Pneumonia [Unknown]
  - Kidney infection [Unknown]
